FAERS Safety Report 7572082-X (Version None)
Quarter: 2011Q2

REPORT INFORMATION
  Report Type: 
  Country: None (occurrence: None)
  Receive Date: 20110624
  Receipt Date: 20110615
  Transmission Date: 20111010
  Serious: Yes (Death)
  Sender: FDA-Public Use
  Company Number: IT-TEVA-286923ISR

PATIENT
  Sex: Male

DRUGS (2)
  1. FLUOROURACIL [Suspect]
  2. LEUCOVORIN CALCIUM [Suspect]

REACTIONS (6)
  - DECREASED APPETITE [None]
  - DIARRHOEA [None]
  - RENAL FAILURE [None]
  - GENERAL PHYSICAL HEALTH DETERIORATION [None]
  - ASTHENIA [None]
  - ELECTROLYTE IMBALANCE [None]
